FAERS Safety Report 8811884 (Version 2)
Quarter: 2012Q4

REPORT INFORMATION
  Report Type: 
  Country: IT (occurrence: IT)
  Receive Date: 20120927
  Receipt Date: 20121010
  Transmission Date: 20130627
  Serious: Yes (Hospitalization)
  Sender: FDA-Public Use
  Company Number: IT-BAXTER-2012BAX017870

PATIENT
  Age: 60 Year
  Sex: Male

DRUGS (8)
  1. HOLOXAN [Suspect]
     Indication: RETROPERITONEAL CANCER
     Route: 042
     Dates: start: 20120830, end: 20120901
  2. MESNA [Concomitant]
     Indication: DRUG USE FOR UNKNOWN INDICATION
     Route: 042
  3. OMEPRAZOLE [Concomitant]
     Indication: DRUG USE FOR UNKNOWN INDICATION
     Route: 048
  4. DEXAMETHASONE [Concomitant]
     Indication: DRUG USE FOR UNKNOWN INDICATION
     Route: 042
     Dates: start: 20120830, end: 20120901
  5. DOXORUBICIN [Concomitant]
     Indication: RETROPERITONEAL CANCER
     Route: 042
     Dates: start: 20120830, end: 20120901
  6. PALEXIA [Concomitant]
     Indication: DRUG USE FOR UNKNOWN INDICATION
     Route: 048
  7. ZOFRAN [Concomitant]
     Indication: DRUG USE FOR UNKNOWN INDICATION
     Route: 042
     Dates: start: 20120830, end: 20120901
  8. ISOLYTE [Concomitant]
     Indication: DRUG USE FOR UNKNOWN INDICATION
     Route: 042

REACTIONS (2)
  - Agitation [Recovered/Resolved]
  - Hallucination, visual [Recovered/Resolved]
